FAERS Safety Report 13743130 (Version 4)
Quarter: 2017Q4

REPORT INFORMATION
  Report Type: Spontaneous
  Country: US (occurrence: US)
  Receive Date: 20170711
  Receipt Date: 20171116
  Transmission Date: 20180320
  Serious: Yes (Other)
  Sender: FDA-Public Use
  Company Number: US-JNJFOC-20170706077

PATIENT
  Sex: Female

DRUGS (1)
  1. REMICADE [Suspect]
     Active Substance: INFLIXIMAB
     Indication: PRODUCT USED FOR UNKNOWN INDICATION
     Route: 042

REACTIONS (7)
  - Pneumonia [Unknown]
  - Sepsis [Unknown]
  - Hydrocephalus [Unknown]
  - Hypoacusis [Unknown]
  - Latent tuberculosis [Unknown]
  - Herpes zoster [Unknown]
  - Central nervous system inflammation [Unknown]

NARRATIVE: CASE EVENT DATE: 2017
